FAERS Safety Report 8065191-2 (Version None)
Quarter: 2012Q1

REPORT INFORMATION
  Report Type: 
  Country: None (occurrence: None)
  Receive Date: 20120117
  Receipt Date: 20120106
  Transmission Date: 20120608
  Serious: Yes (Hospitalization)
  Sender: FDA-Public Use
  Company Number: DSA_48828_2012

PATIENT
  Age: 82 Year
  Sex: Male

DRUGS (7)
  1. DILTIAZEM HYDROCHLORIDE [Suspect]
     Indication: ANGINA PECTORIS
     Dosage: 300 MG, QD, ORAL
     Route: 048
     Dates: start: 20110101, end: 20110705
  2. TIADIPONA [Concomitant]
  3. SINTROM [Concomitant]
  4. RIVASTIGMINE TARTRATE [Concomitant]
  5. THERAPEUTIC RADIOPTHARMACEUTICALS [Concomitant]
  6. SOMNOVIT [Concomitant]
  7. TIMOGEL [Concomitant]

REACTIONS (4)
  - SYNCOPE [None]
  - FALL [None]
  - ATRIAL FIBRILLATION [None]
  - HEAD INJURY [None]
